FAERS Safety Report 7707810-3 (Version None)
Quarter: 2011Q3

REPORT INFORMATION
  Report Type: 
  Country: None (occurrence: None)
  Receive Date: 20110824
  Receipt Date: 20110812
  Transmission Date: 20111222
  Serious: Yes (Hospitalization, Other)
  Sender: FDA-Public Use
  Company Number: PHHY2011TR71987

PATIENT
  Sex: Female
  Weight: 70 kg

DRUGS (1)
  1. GLEEVEC [Suspect]
     Indication: GASTROINTESTINAL STROMAL TUMOUR
     Dosage: 1 DF, QD
     Route: 048
     Dates: start: 20101005, end: 20110611

REACTIONS (4)
  - SUBDURAL HAEMATOMA [None]
  - OEDEMA PERIPHERAL [None]
  - FACE OEDEMA [None]
  - CEREBRAL HAEMORRHAGE [None]
